FAERS Safety Report 15201214 (Version 30)
Quarter: 2022Q1

REPORT INFORMATION
  Report Type: Spontaneous
  Country: US (occurrence: US)
  Receive Date: 20180726
  Receipt Date: 20220302
  Transmission Date: 20220423
  Serious: No
  Sender: FDA-Public Use
  Company Number: US-PFIZER INC-2018299647

PATIENT
  Age: 53 Year
  Sex: Female
  Weight: 51.3 kg

DRUGS (11)
  1. PREMARIN [Suspect]
     Active Substance: ESTROGENS, CONJUGATED
     Indication: Artificial menopause
     Dosage: 1.25 MG
     Route: 048
     Dates: start: 1985
  2. PREMARIN [Suspect]
     Active Substance: ESTROGENS, CONJUGATED
     Indication: Sleep disorder
     Dosage: 1.25 MG, 1X/DAY
     Route: 048
  3. PREMARIN [Suspect]
     Active Substance: ESTROGENS, CONJUGATED
     Indication: Hyperhidrosis
     Dosage: 1.25 MG, 1X/DAY
     Route: 048
  4. PREMARIN [Suspect]
     Active Substance: ESTROGENS, CONJUGATED
     Indication: Cognitive disorder
     Dosage: UNK
     Route: 048
  5. PREMARIN [Suspect]
     Active Substance: ESTROGENS, CONJUGATED
     Indication: Muscle spasms
     Dosage: 1.25 MG, 1X/DAY
     Route: 048
  6. PREMARIN [Suspect]
     Active Substance: ESTROGENS, CONJUGATED
     Indication: Blood testosterone increased
     Dosage: 1.25 MG ( 90 DAYS)
  7. PREMARIN [Suspect]
     Active Substance: ESTROGENS, CONJUGATED
     Dosage: 1.25 MG, DAILY
     Route: 048
  8. PREMARIN [Suspect]
     Active Substance: ESTROGENS, CONJUGATED
     Dosage: UNK
  9. SYNTHROID [Interacting]
     Active Substance: LEVOTHYROXINE SODIUM
     Indication: Hypothyroidism
     Dosage: 100 UG, DAILY
     Route: 048
  10. SYNTHROID [Interacting]
     Active Substance: LEVOTHYROXINE SODIUM
     Dosage: 100 UG (DAILY 5 DAYS A WEEK)
     Dates: start: 202112
  11. SYNTHROID [Interacting]
     Active Substance: LEVOTHYROXINE SODIUM
     Dosage: 50 UG (HALF TAB SATURDAY, SKIPS SUNDAY)
     Dates: start: 202112

REACTIONS (18)
  - Oestrone decreased [Unknown]
  - Oestradiol decreased [Unknown]
  - Blood testosterone increased [Unknown]
  - Hyperoxaluria [Unknown]
  - Disturbance in attention [Unknown]
  - Amnesia [Unknown]
  - Pollakiuria [Unknown]
  - Irregular sleep phase [Unknown]
  - Mood altered [Unknown]
  - Functional gastrointestinal disorder [Unknown]
  - Drug ineffective [Unknown]
  - Product dispensing error [Unknown]
  - Poor quality product administered [Unknown]
  - Product physical consistency issue [Unknown]
  - Product shape issue [Unknown]
  - Disturbance in attention [Unknown]
  - Somnolence [Unknown]
  - Inhibitory drug interaction [Unknown]

NARRATIVE: CASE EVENT DATE: 20210617
